FAERS Safety Report 24538713 (Version 1)
Quarter: 2024Q4

REPORT INFORMATION
  Report Type: Spontaneous
  Country: US (occurrence: US)
  Receive Date: 20241023
  Receipt Date: 20241023
  Transmission Date: 20250114
  Serious: No
  Sender: ROCHE
  Company Number: US-ROCHE-10000090392

PATIENT
  Age: 14 Year
  Sex: Male
  Weight: 37.42 kg

DRUGS (4)
  1. NUTROPIN [Suspect]
     Active Substance: SOMATROPIN
     Indication: Growth hormone deficiency
     Route: 058
     Dates: start: 202307
  2. NUTROPIN [Suspect]
     Active Substance: SOMATROPIN
     Route: 058
  3. VYVANSE [Concomitant]
     Active Substance: LISDEXAMFETAMINE DIMESYLATE
     Indication: Attention deficit hyperactivity disorder
     Route: 048
  4. ESTROGENS [Concomitant]
     Active Substance: ESTROGENS
     Route: 048
     Dates: start: 2024

REACTIONS (4)
  - Product complaint [Unknown]
  - No adverse event [Unknown]
  - Device issue [Unknown]
  - Product complaint [Unknown]

NARRATIVE: CASE EVENT DATE: 20240101
